FAERS Safety Report 19643874 (Version 2)
Quarter: 2023Q4

REPORT INFORMATION
  Report Type: Report from Study
  Country: AR (occurrence: AR)
  Receive Date: 20210730
  Receipt Date: 20231220
  Transmission Date: 20240110
  Serious: Yes (Other)
  Sender: FDA-Public Use
  Company Number: AR-NOVARTISPH-NVSC2021AR168471

PATIENT
  Age: 74 Year
  Sex: Female

DRUGS (2)
  1. COSENTYX [Suspect]
     Active Substance: SECUKINUMAB
     Indication: Psoriatic arthropathy
     Dosage: 300 MG, QMO
     Route: 058
     Dates: start: 20181005
  2. COSENTYX [Suspect]
     Active Substance: SECUKINUMAB
     Dosage: 150 MG, Q2W
     Route: 003
     Dates: start: 20181005

REACTIONS (12)
  - Shock [Unknown]
  - Cardiac failure [Unknown]
  - Nervousness [Unknown]
  - Arthralgia [Unknown]
  - Tension [Unknown]
  - Incorrect route of product administration [Unknown]
  - Off label use [Unknown]
  - Influenza [Unknown]
  - Mood swings [Unknown]
  - Nervousness [Unknown]
  - Nasopharyngitis [Unknown]
  - Malaise [Unknown]

NARRATIVE: CASE EVENT DATE: 20210501
